FAERS Safety Report 24416443 (Version 1)
Quarter: 2024Q4

REPORT INFORMATION
  Report Type: Spontaneous
  Country: US (occurrence: US)
  Receive Date: 20241009
  Receipt Date: 20241009
  Transmission Date: 20250114
  Serious: No
  Sender: CB FLEET
  Company Number: US-C. B. Fleet Co., Inc.-202308-US-002599

PATIENT
  Sex: Female

DRUGS (1)
  1. MONISTAT 1 COMBINATION PACK [Suspect]
     Active Substance: MICONAZOLE NITRATE
     Indication: Fungal infection
     Dosage: ONCE

REACTIONS (3)
  - Vulvovaginal injury [Unknown]
  - Wrong technique in product usage process [None]
  - Vaginal haemorrhage [Unknown]
